FAERS Safety Report 16244082 (Version 1)
Quarter: 2019Q2

REPORT INFORMATION
  Report Type: Spontaneous
  Country: US (occurrence: US)
  Receive Date: 20190322
  Receipt Date: 20190322
  Transmission Date: 20190711
  Serious: No
  Sender: FDA-Public Use
  Company Number: None

PATIENT
  Age: 40 Year
  Sex: Female

DRUGS (1)
  1. SOFOSBUVIR/VALPATASVIR 400-100MG [Suspect]
     Active Substance: SOFOSBUVIR\VELPATASVIR
     Indication: HEPATITIS C
     Route: 048
     Dates: start: 201903

REACTIONS (6)
  - Nasopharyngitis [None]
  - Pulmonary congestion [None]
  - Cough [None]
  - Fatigue [None]
  - Sleep disorder [None]
  - Ill-defined disorder [None]

NARRATIVE: CASE EVENT DATE: 20190322
